FAERS Safety Report 8248986-1 (Version None)
Quarter: 2012Q2

REPORT INFORMATION
  Report Type: 
  Country: None (occurrence: None)
  Receive Date: 20120402
  Receipt Date: 20120323
  Transmission Date: 20120825
  Serious: Yes (Hospitalization)
  Sender: FDA-Public Use
  Company Number: US-BIOGENIDEC-2012BI010834

PATIENT
  Age: 70 Year
  Sex: Male

DRUGS (1)
  1. TYSABRI [Suspect]
     Indication: MULTIPLE SCLEROSIS
     Route: 042
     Dates: start: 20120312

REACTIONS (11)
  - LETHARGY [None]
  - ERYTHEMA [None]
  - ASTHENIA [None]
  - URINARY TRACT INFECTION [None]
  - FLUID RETENTION [None]
  - BRADYPHRENIA [None]
  - CELLULITIS [None]
  - URTICARIA [None]
  - SKIN EXFOLIATION [None]
  - LOSS OF CONTROL OF LEGS [None]
  - MUSCULAR WEAKNESS [None]
